FAERS Safety Report 4439828-0 (Version None)
Quarter: 2004Q3

REPORT INFORMATION
  Report Type: 
  Country: None (occurrence: None)
  Receive Date: 20040831
  Receipt Date: 20040820
  Transmission Date: 20050211
  Serious: Yes (Hospitalization)
  Sender: FDA-Public Use
  Company Number: K200401288

PATIENT
  Age: 83 Year
  Sex: Male

DRUGS (7)
  1. ALTACE [Suspect]
     Dosage: ORAL
     Route: 048
  2. FUROSEMIDE [Suspect]
     Dosage: ORAL
     Route: 048
  3. METOPROLOL TARTRATE [Suspect]
     Dosage: ORAL
     Route: 048
  4. CORDARONE [Concomitant]
  5. KARDEGIC (ACETYLSALICYLIC LYSINE) [Concomitant]
  6. OMEPRAZOLE [Concomitant]
  7. PREVISCAN (FLUINDIONE) [Concomitant]

REACTIONS (4)
  - DEHYDRATION [None]
  - FALL [None]
  - HYPOTENSION [None]
  - INTERNATIONAL NORMALISED RATIO INCREASED [None]
